FAERS Safety Report 8843270 (Version 2)
Quarter: 2012Q4

REPORT INFORMATION
  Report Type: 
  Country: JP (occurrence: JP)
  Receive Date: 20121016
  Receipt Date: 20121022
  Transmission Date: 20130627
  Serious: Yes (Other)
  Sender: FDA-Public Use
  Company Number: PHHY2012JP091250

PATIENT
  Age: 65 Year
  Sex: Female

DRUGS (1)
  1. TEGRETOL [Suspect]
     Indication: EPILEPSY
     Dosage: 200 mg, daily
     Route: 048
     Dates: start: 2011

REACTIONS (2)
  - Convulsion [Recovered/Resolved]
  - Pneumonia [Unknown]
